FAERS Safety Report 14377683 (Version 2)
Quarter: 2018Q4

REPORT INFORMATION
  Report Type: Spontaneous
  Country: US (occurrence: US)
  Receive Date: 20180111
  Receipt Date: 20181227
  Transmission Date: 20190204
  Serious: No
  Sender: FDA-Public Use
  Company Number: US-009507513-1801USA001035

PATIENT
  Age: 16 Year
  Sex: Female

DRUGS (2)
  1. TEMODAR [Suspect]
     Active Substance: TEMOZOLOMIDE
     Indication: ANAPLASTIC ASTROCYTOMA
     Dosage: 150-200 MG/M2 FOR 5 DAYS IN 28-DAY CYCLES FOR SIX CYCLES
     Route: 048
  2. TEMODAR [Suspect]
     Active Substance: TEMOZOLOMIDE
     Indication: CHEMOTHERAPY

REACTIONS (1)
  - Product use in unapproved indication [Unknown]
